FAERS Safety Report 17235736 (Version 3)
Quarter: 2021Q1

REPORT INFORMATION
  Report Type: Report from Study
  Country: US (occurrence: US)
  Receive Date: 20200106
  Receipt Date: 20210316
  Transmission Date: 20210419
  Serious: Yes (Death, Hospitalization, Other)
  Sender: FDA-Public Use
  Company Number: US-ROCHE-2360696

PATIENT
  Age: 62 Year
  Sex: Male
  Weight: 93.2 kg

DRUGS (4)
  1. CYT 107 [Suspect]
     Active Substance: INTERLEUKIN-7 HUMAN RECOMBINANT
     Indication: TRANSITIONAL CELL CARCINOMA
     Dosage: MOST RECENT DOSE (2640 MG) OF CYT107 PRIOR TO EVENT ONSET: 02/JUL/2019
     Route: 030
     Dates: start: 20190618
  2. CISPLATIN. [Concomitant]
     Active Substance: CISPLATIN
  3. GEMCITABINE HYDROCHLORIDE. [Concomitant]
     Active Substance: GEMCITABINE HYDROCHLORIDE
  4. ATEZOLIZUMAB. [Suspect]
     Active Substance: ATEZOLIZUMAB
     Indication: TRANSITIONAL CELL CARCINOMA
     Dosage: CYCLE 1, DAY 8?MOST RECENT DOSE 1200 MG OF ATEZOLIZUMAB PRIOR TO EVENT: 25/JUN/2019
     Route: 042
     Dates: start: 20190618

REACTIONS (6)
  - Blood bilirubin increased [Not Recovered/Not Resolved]
  - Blood alkaline phosphatase increased [Unknown]
  - Aspartate aminotransferase increased [Unknown]
  - Portal vein thrombosis [Unknown]
  - Renal artery stenosis [Unknown]
  - Disease progression [Fatal]

NARRATIVE: CASE EVENT DATE: 20190712
